FAERS Safety Report 11094749 (Version 1)
Quarter: 2015Q2

REPORT INFORMATION
  Report Type: Spontaneous
  Country: US (occurrence: US)
  Receive Date: 20150506
  Receipt Date: 20150506
  Transmission Date: 20150821
  Serious: No
  Sender: FDA-Public Use
  Company Number: US-BAYER-2015-190906

PATIENT
  Age: 5 Year
  Sex: Male
  Weight: 25.85 kg

DRUGS (2)
  1. LACTAID [Concomitant]
     Active Substance: LACTASE
     Dosage: UNK
  2. CLARITIN [Suspect]
     Active Substance: LORATADINE
     Indication: SEASONAL ALLERGY
     Dosage: 1 TBSP, ONCE
     Route: 048
     Dates: start: 20150428, end: 20150428

REACTIONS (1)
  - Expired product administered [Unknown]

NARRATIVE: CASE EVENT DATE: 20150428
